FAERS Safety Report 6270825-9 (Version None)
Quarter: 2009Q3

REPORT INFORMATION
  Report Type: 
  Country: None (occurrence: None)
  Receive Date: 20090716
  Receipt Date: 20090710
  Transmission Date: 20100115
  Serious: Yes (Death, Other)
  Sender: FDA-Public Use
  Company Number: PHEH2009US07524

PATIENT
  Sex: Male

DRUGS (3)
  1. GLEEVEC [Suspect]
     Indication: CHRONIC MYELOID LEUKAEMIA
     Dosage: 400 MG, QD
     Route: 048
  2. GLEEVEC [Suspect]
     Dosage: 300 MG, UNK
  3. SPRYCEL [Suspect]
     Dosage: 50 MG, EVERY THREE DAYS

REACTIONS (3)
  - MYOCARDIAL INFARCTION [None]
  - OEDEMA [None]
  - PULMONARY OEDEMA [None]
